FAERS Safety Report 9958842 (Version 1)
Quarter: 2014Q1

REPORT INFORMATION
  Report Type: Report from Study
  Country: PR (occurrence: PR)
  Receive Date: 20140305
  Receipt Date: 20140305
  Transmission Date: 20141002
  Serious: No
  Sender: FDA-Public Use
  Company Number: PR-ABBVIE-13P-131-1111871-00

PATIENT
  Sex: Female
  Weight: 59.02 kg

DRUGS (20)
  1. HUMIRA [Suspect]
     Indication: RHEUMATOID ARTHRITIS
     Route: 058
     Dates: start: 2009
  2. SINGULAIR [Concomitant]
     Indication: ASTHMA
     Route: 048
  3. ADVAIR [Concomitant]
     Indication: ASTHMA
     Route: 048
  4. PROVENTIL [Concomitant]
     Indication: ASTHMA
     Route: 048
  5. AZELASTINE [Concomitant]
     Indication: ASTHMA
     Route: 055
  6. COZAAR [Concomitant]
     Indication: HYPERTENSION
     Route: 048
  7. METHOTREXATE [Concomitant]
     Indication: RHEUMATOID ARTHRITIS
     Dosage: 1 FOR 3 DAYS
     Route: 048
  8. BONIVA [Concomitant]
     Indication: OSTEOPOROSIS
     Route: 048
  9. ESTRADIOL [Concomitant]
     Indication: HORMONE LEVEL ABNORMAL
  10. TRICOR [Concomitant]
     Indication: BLOOD CHOLESTEROL
     Route: 048
  11. KLONOPIN [Concomitant]
     Indication: INSOMNIA
     Route: 048
  12. NEURONTIN [Concomitant]
     Indication: PAIN
     Route: 048
  13. VITAMIN D [Concomitant]
     Indication: VITAMIN SUPPLEMENTATION
     Route: 048
  14. FOLIC ACID [Concomitant]
     Indication: VITAMIN SUPPLEMENTATION
     Route: 048
  15. ALTICAL [Concomitant]
     Indication: BLOOD CALCIUM
     Route: 048
  16. VITAMIN B12 [Concomitant]
     Indication: VITAMIN SUPPLEMENTATION
     Route: 060
  17. PROTECT PLUS [Concomitant]
     Indication: BLOOD IRON
     Route: 048
  18. LIPO-FLAVONOID? PLUS [Concomitant]
     Indication: VITAMIN SUPPLEMENTATION
     Route: 048
  19. RESTASIS [Concomitant]
     Indication: EYE DISORDER
     Route: 047
  20. OPTI FRESH [Concomitant]
     Indication: EYE DISORDER

REACTIONS (1)
  - Melanocytic naevus [Recovering/Resolving]
